FAERS Safety Report 13818104 (Version 1)
Quarter: 2017Q3

REPORT INFORMATION
  Report Type: Spontaneous
  Country: US (occurrence: US)
  Receive Date: 20170731
  Receipt Date: 20170731
  Transmission Date: 20171127
  Serious: No
  Sender: FDA-Public Use
  Company Number: US-ROCHE-636627

PATIENT
  Age: 83 Year
  Sex: Male

DRUGS (3)
  1. BONIVA [Suspect]
     Active Substance: IBANDRONATE SODIUM
     Indication: OSTEOPOROSIS
     Route: 042
  2. ANTACID NOS [Concomitant]
     Active Substance: UNSPECIFIED INGREDIENT
     Dosage: TAKEN DAILY.
     Route: 048
  3. BENTYL [Concomitant]
     Active Substance: DICYCLOMINE HYDROCHLORIDE
     Route: 048

REACTIONS (1)
  - Cardiospasm [Not Recovered/Not Resolved]

NARRATIVE: CASE EVENT DATE: 200904
